FAERS Safety Report 6425489-8 (Version None)
Quarter: 2009Q4

REPORT INFORMATION
  Report Type: 
  Country: None (occurrence: None)
  Receive Date: 20091103
  Receipt Date: 20091027
  Transmission Date: 20100525
  Serious: Yes (Hospitalization)
  Sender: FDA-Public Use
  Company Number: DE-PFIZER INC-2009288801

PATIENT
  Sex: Male

DRUGS (2)
  1. SORTIS [Suspect]
     Dosage: 40 MG, 1X/DAY
     Route: 048
     Dates: start: 20090601, end: 20090101
  2. ST. JOHN'S WORT [Interacting]
     Dosage: UNK
     Dates: end: 20090101

REACTIONS (2)
  - DRUG INTERACTION [None]
  - TRANSAMINASES INCREASED [None]
